FAERS Safety Report 10626920 (Version 2)
Quarter: 2014Q4

REPORT INFORMATION
  Report Type: Spontaneous
  Country: IN (occurrence: IN)
  Receive Date: 20141204
  Receipt Date: 20141211
  Transmission Date: 20150529
  Serious: Yes (Other)
  Sender: FDA-Public Use
  Company Number: IN-MYLANLABS-2014M1012780

PATIENT
  Sex: Male

DRUGS (16)
  1. ATAZANAVIR [Suspect]
     Active Substance: ATAZANAVIR
     Indication: HIV INFECTION
     Route: 065
     Dates: start: 201105, end: 201112
  2. RITONAVIR. [Suspect]
     Active Substance: RITONAVIR
     Indication: HIV INFECTION
     Route: 065
     Dates: start: 200509
  3. STAVUDINE. [Suspect]
     Active Substance: STAVUDINE
     Route: 065
     Dates: start: 200512, end: 200708
  4. ZIDOVUDINE. [Suspect]
     Active Substance: ZIDOVUDINE
     Indication: HIV INFECTION
     Route: 065
     Dates: start: 200204, end: 200403
  5. ZIDOVUDINE. [Suspect]
     Active Substance: ZIDOVUDINE
     Route: 065
     Dates: start: 200509, end: 200512
  6. ZIDOVUDINE. [Suspect]
     Active Substance: ZIDOVUDINE
     Route: 065
     Dates: start: 200911, end: 201105
  7. SAQUINAVIR [Suspect]
     Active Substance: SAQUINAVIR
     Indication: HIV INFECTION
     Route: 065
     Dates: start: 200512, end: 200708
  8. COTRIMOXAZOLE [Concomitant]
     Active Substance: SULFAMETHOXAZOLE\TRIMETHOPRIM
     Indication: PULMONARY TUBERCULOSIS
     Dates: start: 2004
  9. STAVUDINE. [Suspect]
     Active Substance: STAVUDINE
     Indication: HIV INFECTION
     Route: 065
     Dates: start: 200403, end: 200509
  10. ABACAVIR [Suspect]
     Active Substance: ABACAVIR
     Indication: HIV INFECTION
     Route: 065
     Dates: start: 200708, end: 200911
  11. EFAVIRENZ [Suspect]
     Active Substance: EFAVIRENZ
     Indication: HIV INFECTION
     Route: 065
     Dates: start: 200404, end: 200509
  12. LAMIVUDINE. [Suspect]
     Active Substance: LAMIVUDINE
     Route: 065
     Dates: start: 200911
  13. NEVIRAPINE. [Suspect]
     Active Substance: NEVIRAPINE
     Route: 065
     Dates: start: 200204, end: 200404
  14. LAMIVUDINE. [Suspect]
     Active Substance: LAMIVUDINE
     Indication: HIV INFECTION
     Route: 065
     Dates: start: 200204, end: 200708
  15. TENOFOVIR DISOPROXIL FUMARATE [Suspect]
     Active Substance: TENOFOVIR DISOPROXIL FUMARATE
     Route: 065
     Dates: start: 200708
  16. LOPINAVIR [Suspect]
     Active Substance: LOPINAVIR
     Indication: HIV INFECTION
     Route: 065
     Dates: start: 200708, end: 201105

REACTIONS (3)
  - Anaemia [Unknown]
  - Treatment failure [Recovered/Resolved]
  - Gastritis [Unknown]

NARRATIVE: CASE EVENT DATE: 200509
